FAERS Safety Report 9933168 (Version 1)
Quarter: 2014Q1

REPORT INFORMATION
  Report Type: Report from Study
  Country: US (occurrence: US)
  Receive Date: 20140228
  Receipt Date: 20140228
  Transmission Date: 20141002
  Serious: No
  Sender: FDA-Public Use
  Company Number: US-ABBVIE-13P-163-1114209-00

PATIENT
  Age: 75 Year
  Sex: Male
  Weight: 78.54 kg

DRUGS (9)
  1. ANDROGEL [Suspect]
     Indication: ASTHENIA
     Dates: start: 20130307, end: 20130411
  2. ANDROGEL [Suspect]
     Indication: LOSS OF LIBIDO
  3. ANDROGEL [Suspect]
     Indication: MUSCULAR WEAKNESS
  4. ANDROGEL [Suspect]
     Indication: ASTHENIA
  5. SIMVASTATIN [Concomitant]
     Indication: BLOOD CHOLESTEROL
  6. NIACIN [Concomitant]
     Indication: BLOOD CHOLESTEROL
  7. ASPIRIN [Concomitant]
     Indication: PRODUCT USED FOR UNKNOWN INDICATION
  8. GLUCOSAMINE [Concomitant]
     Indication: PRODUCT USED FOR UNKNOWN INDICATION
  9. CENTRUM SILVER [Concomitant]
     Indication: PRODUCT USED FOR UNKNOWN INDICATION

REACTIONS (6)
  - Sluggishness [Not Recovered/Not Resolved]
  - Loss of libido [Not Recovered/Not Resolved]
  - Off label use [Not Recovered/Not Resolved]
  - Incorrect dose administered [Unknown]
  - Blood testosterone decreased [Not Recovered/Not Resolved]
  - Incorrect drug dosage form administered [Unknown]
